FAERS Safety Report 20140724 (Version 1)
Quarter: 2021Q4

REPORT INFORMATION
  Report Type: Report from Study
  Country: BR (occurrence: BR)
  Receive Date: 20211202
  Receipt Date: 20211202
  Transmission Date: 20220303
  Serious: Yes (Other)
  Sender: FDA-Public Use
  Company Number: BR-NOVARTISPH-NVSC2020BR150204

PATIENT
  Age: 59 Year
  Sex: Female

DRUGS (2)
  1. TIMOLOL MALEATE\TRAVOPROST [Suspect]
     Active Substance: TIMOLOL MALEATE\TRAVOPROST
     Indication: Glaucoma
     Dosage: IN THE MORNING
     Route: 065
     Dates: end: 201912
  2. TRAVOPROST [Suspect]
     Active Substance: TRAVOPROST
     Indication: Product used for unknown indication
     Dosage: UNK
     Route: 065

REACTIONS (17)
  - Dengue fever [Unknown]
  - Viral infection [Unknown]
  - Vomiting [Unknown]
  - Pyrexia [Unknown]
  - Pain [Unknown]
  - Feeling abnormal [Recovering/Resolving]
  - Asthenia [Recovering/Resolving]
  - Malaise [Recovering/Resolving]
  - Headache [Unknown]
  - Eye pain [Unknown]
  - Eye irritation [Unknown]
  - Vision blurred [Unknown]
  - Eye pruritus [Unknown]
  - Condition aggravated [Unknown]
  - Asthenopia [Unknown]
  - Ocular discomfort [Unknown]
  - Drug ineffective [Unknown]

NARRATIVE: CASE EVENT DATE: 20200315
